FAERS Safety Report 13016027 (Version 1)
Quarter: 2016Q4

REPORT INFORMATION
  Report Type: Spontaneous
  Country: US (occurrence: US)
  Receive Date: 20161212
  Receipt Date: 20161212
  Transmission Date: 20170207
  Serious: No
  Sender: FDA-Public Use
  Company Number: US-JNJFOC-20161109345

PATIENT
  Sex: Female

DRUGS (3)
  1. TYLENOL [Concomitant]
     Active Substance: ACETAMINOPHEN
     Indication: SLEEP DISORDER
     Dosage: AT NIGHT
     Route: 065
  2. XARELTO [Suspect]
     Active Substance: RIVAROXABAN
     Indication: PRODUCT USED FOR UNKNOWN INDICATION
     Route: 048
     Dates: start: 2016
  3. CODEINE [Concomitant]
     Active Substance: CODEINE
     Indication: SLEEP DISORDER
     Dosage: AT NIGHT
     Route: 065

REACTIONS (4)
  - Paranasal sinus hypersecretion [Unknown]
  - Pain in extremity [Unknown]
  - Hypersensitivity [Unknown]
  - Peripheral swelling [Unknown]
